FAERS Safety Report 23482917 (Version 3)
Quarter: 2024Q1

REPORT INFORMATION
  Report Type: Spontaneous
  Country: DE (occurrence: DE)
  Receive Date: 20240205
  Receipt Date: 20240223
  Transmission Date: 20240409
  Serious: Yes (Hospitalization)
  Sender: FDA-Public Use
  Company Number: DE-SANDOZ-SDZ2024DE010902

PATIENT
  Age: 63 Year
  Sex: Male
  Weight: 101.3 kg

DRUGS (9)
  1. FLUOROURACIL [Suspect]
     Active Substance: FLUOROURACIL
     Indication: Oesophageal adenocarcinoma
     Dosage: 2600 MG/M2, IV, D1/D15/D29 AND D43 PRE-AND POST OP; LAST DOSE GIVEN BEFORE ONSET OF THE RAE WAS ON 0
     Route: 042
     Dates: start: 20230614
  2. DOCETAXEL [Suspect]
     Active Substance: DOCETAXEL\DOCETAXEL ANHYDROUS
     Indication: Oesophageal adenocarcinoma
     Dosage: 50 MG/M2, IV, D1/D15/D29 AND D43 PRE-AND POST OP; LAST DOSE GIVEN BEFORE ONSET OF THE RAE WAS ON 01-
     Route: 042
     Dates: start: 20230614
  3. LEUCOVORIN [Suspect]
     Active Substance: LEUCOVORIN\LEUCOVORIN CALCIUM
     Indication: Oesophageal adenocarcinoma
     Dosage: 200 MG/M2, IV, D1/D15/D29 AND D43 PRE-AND POST OP; LAST DOSE GIVEN BEFORE ONSET OF THE RAE WAS ON 01
     Route: 042
     Dates: start: 20230614
  4. OXALIPLATIN [Suspect]
     Active Substance: OXALIPLATIN
     Indication: Oesophageal adenocarcinoma
     Dosage: 85 MG/M2, IV, D1/D15/D29 AND D43 PRE-AND POST OP; LAST DOSE GIVEN BEFORE ONSET OF THE RAE WAS ON 01-
     Route: 042
     Dates: start: 20230614
  5. ONTRUZANT [Suspect]
     Active Substance: TRASTUZUMAB-DTTB
     Dosage: AFTERWARDS 6 MG/KG IV D1 Q3W; LAST DOSE GIVEN BEFORE ONSET OF THE RAE WAS ON 01-AUG-2023;
     Route: 042
  6. ONTRUZANT [Suspect]
     Active Substance: TRASTUZUMAB-DTTB
     Indication: Oesophageal adenocarcinoma
     Dosage: D22/D43 PRE-AND POST OP;
     Route: 042
  7. ONTRUZANT [Suspect]
     Active Substance: TRASTUZUMAB-DTTB
     Dosage: D1: 8 MG/KG
     Route: 042
     Dates: start: 20230614
  8. PEMBROLIZUMAB [Suspect]
     Active Substance: PEMBROLIZUMAB
     Dosage: AFTERWARDS D1 Q3W; LAST DOSE GIVEN BEFORE ONSET OF THE RAE WAS ON 01-AUG-2023;
     Route: 042
  9. PEMBROLIZUMAB [Suspect]
     Active Substance: PEMBROLIZUMAB
     Indication: Oesophageal adenocarcinoma
     Dosage: 200 MG FLAT DOSE, IV, D1/D22/D43 PRE-AND POST OP
     Route: 042
     Dates: start: 20230614

REACTIONS (6)
  - Staphylococcal infection [Recovered/Resolved]
  - Post procedural infection [Recovered/Resolved]
  - Surgery [Unknown]
  - Weight decreased [Not Recovered/Not Resolved]
  - Sepsis [Not Recovered/Not Resolved]
  - Product use in unapproved indication [Unknown]

NARRATIVE: CASE EVENT DATE: 20230918
